FAERS Safety Report 4349105-4 (Version None)
Quarter: 2004Q2

REPORT INFORMATION
  Report Type: 
  Country: None (occurrence: None)
  Receive Date: 20040427
  Receipt Date: 20040427
  Transmission Date: 20050107
  Serious: Yes (Other)
  Sender: FDA-Public Use
  Company Number: None

PATIENT
  Age: 54 Year
  Sex: Male
  Weight: 68.0396 kg

DRUGS (1)
  1. LARIAM [Suspect]
     Indication: MALARIA PROPHYLAXIS
     Dosage: 1 TABLET WEEKLY ORAL
     Route: 048
     Dates: start: 20030621, end: 20030801

REACTIONS (4)
  - DIFFICULTY IN WALKING [None]
  - DIZZINESS [None]
  - EATING DISORDER [None]
  - MUSCLE CRAMP [None]
